FAERS Safety Report 22252733 (Version 1)
Quarter: 2023Q2

REPORT INFORMATION
  Report Type: Spontaneous
  Country: None (occurrence: CN)
  Receive Date: 20230426
  Receipt Date: 20230426
  Transmission Date: 20230722
  Serious: Yes (Other)
  Sender: FDA-Public Use
  Company Number: CN-Jiangsu Hengrui Medicine Co., Ltd.-2140796

PATIENT
  Age: 66 Year
  Sex: Male
  Weight: 90 kg

DRUGS (2)
  1. OXALIPLATIN [Suspect]
     Active Substance: OXALIPLATIN
     Indication: Neoplasm malignant
     Route: 041
     Dates: start: 20230329, end: 20230329
  2. DEXTROSE [Concomitant]
     Active Substance: DEXTROSE\DEXTROSE MONOHYDRATE
     Route: 041
     Dates: start: 20230329, end: 20230329

REACTIONS (5)
  - Nausea [Recovering/Resolving]
  - Vomiting [Recovering/Resolving]
  - Hyperhidrosis [Recovering/Resolving]
  - Palpitations [Recovering/Resolving]
  - Sinus arrhythmia [Recovering/Resolving]

NARRATIVE: CASE EVENT DATE: 20230329
